FAERS Safety Report 15451417 (Version 2)
Quarter: 2018Q4

REPORT INFORMATION
  Report Type: Spontaneous
  Country: US (occurrence: US)
  Receive Date: 20181001
  Receipt Date: 20181008
  Transmission Date: 20190204
  Serious: Yes (Death, Other)
  Sender: FDA-Public Use
  Company Number: US-PFIZER INC-2018392860

PATIENT
  Age: 66 Year
  Sex: Female

DRUGS (5)
  1. FLUDARABINE PHOSPHATE. [Suspect]
     Active Substance: FLUDARABINE PHOSPHATE
     Indication: NON-HODGKIN^S LYMPHOMA
     Dosage: 24 MG/M2, UNK (DOSE NO 5)
  2. MELPHALAN. [Concomitant]
     Active Substance: MELPHALAN
     Indication: NON-HODGKIN^S LYMPHOMA
     Dosage: UNK
  3. MELPHALAN. [Concomitant]
     Active Substance: MELPHALAN
     Dosage: 100 MG/M2, UNK (REDUCED 25% TO 100 MG/M2)
  4. TACROLIMUS. [Suspect]
     Active Substance: TACROLIMUS
     Dosage: UNK
  5. ALEMTUZUMAB [Concomitant]
     Active Substance: ALEMTUZUMAB
     Indication: NON-HODGKIN^S LYMPHOMA
     Dosage: 20 MG, UNK (DOSE NO. 5)

REACTIONS (5)
  - Posterior reversible encephalopathy syndrome [Unknown]
  - Neurotoxicity [Fatal]
  - Confusional state [Unknown]
  - Amnesia [Unknown]
  - Tremor [Unknown]
